FAERS Safety Report 23569535 (Version 2)
Quarter: 2024Q1

REPORT INFORMATION
  Report Type: Spontaneous
  Country: US (occurrence: US)
  Receive Date: 20240227
  Receipt Date: 20240314
  Transmission Date: 20240410
  Serious: Yes (Other)
  Sender: FDA-Public Use
  Company Number: US-BRISTOL-MYERS SQUIBB COMPANY-2024-031340

PATIENT
  Age: 54 Year
  Sex: Female

DRUGS (2)
  1. ELIQUIS [Suspect]
     Active Substance: APIXABAN
     Indication: Atrial fibrillation
     Route: 048
     Dates: start: 20231012
  2. ELIQUIS [Suspect]
     Active Substance: APIXABAN
     Dosage: AT A REDUCED DOSE
     Route: 048

REACTIONS (3)
  - Treatment noncompliance [Unknown]
  - Gastrointestinal haemorrhage [Unknown]
  - Off label use [Unknown]
